FAERS Safety Report 12272928 (Version 1)
Quarter: 2016Q2

REPORT INFORMATION
  Report Type: Report from Study
  Country: US (occurrence: US)
  Receive Date: 20160415
  Receipt Date: 20160415
  Transmission Date: 20160815
  Serious: No
  Sender: FDA-Public Use
  Company Number: US-MDT-ADR-2015-02412

PATIENT
  Age: 73 Year
  Sex: Female

DRUGS (5)
  1. BACLOFEN. [Suspect]
     Active Substance: BACLOFEN
     Dosage: 59.98 MCG/DAY
     Route: 037
     Dates: start: 20150627
  2. MORPHINE [Suspect]
     Active Substance: MORPHINE
     Dosage: 0.2404 MG/DAY
     Route: 037
     Dates: start: 20140515
  3. BACLOFEN. [Suspect]
     Active Substance: BACLOFEN
     Dosage: 63.13 MCG/DAY
     Route: 037
     Dates: start: 20150623
  4. HYDROMORPHONE [Suspect]
     Active Substance: HYDROMORPHONE
     Dosage: 0.1920 MG/DAY
     Route: 037
     Dates: start: 20150627
  5. HYDROMORPHONE [Suspect]
     Active Substance: HYDROMORPHONE
     Dosage: 0.2020 MG/DAY
     Route: 037
     Dates: start: 20150623

REACTIONS (1)
  - Muscle spasms [Not Recovered/Not Resolved]

NARRATIVE: CASE EVENT DATE: 20140521
